FAERS Safety Report 6783288-1 (Version None)
Quarter: 2010Q2

REPORT INFORMATION
  Report Type: 
  Country: None (occurrence: None)
  Receive Date: 20100618
  Receipt Date: 20100607
  Transmission Date: 20101027
  Serious: Yes (Other)
  Sender: FDA-Public Use
  Company Number: 608499

PATIENT
  Sex: Female

DRUGS (1)
  1. EPINEPHRINE [Suspect]
     Indication: CATARACT OPERATION
     Dates: start: 20100405

REACTIONS (1)
  - STAPHYLOCOCCAL INFECTION [None]
